FAERS Safety Report 15978161 (Version 6)
Quarter: 2019Q3

REPORT INFORMATION
  Report Type: Spontaneous
  Country: US (occurrence: US)
  Receive Date: 20190218
  Receipt Date: 20190717
  Transmission Date: 20191004
  Serious: No
  Sender: FDA-Public Use
  Company Number: US-SA-2019SA044862

PATIENT
  Age: 74 Year
  Sex: Female

DRUGS (1)
  1. LUMIZYME [Suspect]
     Active Substance: ALGLUCOSIDASE ALFA
     Dosage: 1750 MG, QOW
     Route: 041
     Dates: start: 20160523

REACTIONS (4)
  - Flatulence [Unknown]
  - Unevaluable event [Unknown]
  - Blood immunoglobulin G increased [Unknown]
  - Gastric disorder [Unknown]

NARRATIVE: CASE EVENT DATE: 20190207
